FAERS Safety Report 8826148 (Version 9)
Quarter: 2014Q2

REPORT INFORMATION
  Report Type: Report from Study
  Country: GB (occurrence: GB)
  Receive Date: 20121005
  Receipt Date: 20140604
  Transmission Date: 20141212
  Serious: Yes (Other)
  Sender: FDA-Public Use
  Company Number: GB-ROCHE-1138257

PATIENT
  Age: 55 Year
  Sex: Female
  Weight: 62.1 kg

DRUGS (15)
  1. RHUPH20/RITUXIMAB [Suspect]
     Indication: B-CELL LYMPHOMA
     Route: 058
     Dates: start: 20120905
  2. RHUPH20/RITUXIMAB [Suspect]
     Dosage: DATE OF LAST DOSE PRIOR TO SAE:05/SEP/2012
     Route: 058
     Dates: start: 20120919
  3. RHUPH20/RITUXIMAB [Suspect]
     Route: 058
     Dates: start: 20121017
  4. RHUPH20/RITUXIMAB [Suspect]
     Route: 058
     Dates: start: 20121121
  5. RHUPH20/RITUXIMAB [Suspect]
     Route: 058
     Dates: start: 20121205
  6. RHUPH20/RITUXIMAB [Suspect]
     Route: 058
     Dates: start: 20130102
  7. RHUPH20/RITUXIMAB [Suspect]
     Route: 058
     Dates: start: 20130206
  8. RHUPH20/RITUXIMAB [Suspect]
     Route: 058
     Dates: start: 20130605
  9. RHUPH20/RITUXIMAB [Suspect]
     Route: 058
     Dates: start: 20130410
  10. RITUXIMAB [Suspect]
     Indication: B-CELL LYMPHOMA
     Dosage: LAST DOSE PRIOR TO SAE 05/SEP/2012
     Route: 042
     Dates: start: 20120822
  11. FILGRASTIM [Concomitant]
     Indication: NEUTROPENIA
     Route: 065
     Dates: start: 20120905, end: 20120918
  12. FILGRASTIM [Concomitant]
     Route: 065
     Dates: start: 20130130, end: 20130203
  13. POTASSIUM CHLORIDE [Concomitant]
     Route: 065
     Dates: start: 20130102, end: 20130109
  14. HYDROCORTISONE CREAM [Concomitant]
     Indication: ECZEMA
     Route: 065
     Dates: start: 20131211, end: 20140205
  15. FEXOFENADINE [Concomitant]
     Indication: ECZEMA
     Route: 065
     Dates: start: 20131211, end: 20140205

REACTIONS (1)
  - Injection site reaction [Recovered/Resolved]
